FAERS Safety Report 23913271 (Version 2)
Quarter: 2024Q2

REPORT INFORMATION
  Report Type: Spontaneous
  Country: US (occurrence: US)
  Receive Date: 20240529
  Receipt Date: 20240626
  Transmission Date: 20240716
  Serious: No
  Sender: FDA-Public Use
  Company Number: US-BAUSCHBL-2024BNL027523

PATIENT
  Age: 59 Year
  Sex: Female
  Weight: 56.69 kg

DRUGS (1)
  1. ALAWAY [Suspect]
     Active Substance: KETOTIFEN FUMARATE
     Indication: Hypersensitivity
     Route: 065
     Dates: start: 202405, end: 202405

REACTIONS (2)
  - Eye irritation [Unknown]
  - Eye disorder [Unknown]

NARRATIVE: CASE EVENT DATE: 20240501
